FAERS Safety Report 21955536 (Version 1)
Quarter: 2023Q1

REPORT INFORMATION
  Report Type: Spontaneous
  Country: US (occurrence: US)
  Receive Date: 20230206
  Receipt Date: 20230206
  Transmission Date: 20230418
  Serious: No
  Sender: FDA-Public Use
  Company Number: US-JNJFOC-20230156292

PATIENT
  Age: 78 Year
  Sex: Male
  Weight: 230 kg

DRUGS (2)
  1. XARELTO [Suspect]
     Active Substance: RIVAROXABAN
     Indication: Thrombosis prophylaxis
     Route: 048
  2. XARELTO [Suspect]
     Active Substance: RIVAROXABAN
     Indication: Atrial fibrillation

REACTIONS (4)
  - Skin atrophy [Unknown]
  - Skin abrasion [Unknown]
  - Impaired healing [Unknown]
  - Skin haemorrhage [Unknown]
